FAERS Safety Report 12874136 (Version 4)
Quarter: 2017Q1

REPORT INFORMATION
  Report Type: Report from Study
  Country: US (occurrence: US)
  Receive Date: 20161021
  Receipt Date: 20170126
  Transmission Date: 20170428
  Serious: Yes (Death, Hospitalization, Other)
  Sender: FDA-Public Use
  Company Number: US-GILEAD-2016-0239478

PATIENT
  Age: 44 Year
  Sex: Female
  Weight: 77.98 kg

DRUGS (25)
  1. ACETAMINOPHEN. [Concomitant]
     Active Substance: ACETAMINOPHEN
  2. LASIX [Concomitant]
     Active Substance: FUROSEMIDE
  3. AMBRISENTAN [Suspect]
     Active Substance: AMBRISENTAN
     Indication: PULMONARY ARTERIAL HYPERTENSION
     Dosage: 10 MG, QD
     Route: 048
     Dates: start: 20150805
  4. FLOLAN [Concomitant]
     Active Substance: EPOPROSTENOL SODIUM
  5. AMBRISENTAN [Suspect]
     Active Substance: AMBRISENTAN
     Indication: DRUG ABUSE
  6. SYNTHROID [Concomitant]
     Active Substance: LEVOTHYROXINE SODIUM
  7. PLAQUENIL                          /00072602/ [Concomitant]
     Active Substance: HYDROXYCHLOROQUINE DIPHOSPHATE
  8. DOBUTAMINE [Concomitant]
     Active Substance: DOBUTAMINE\DOBUTAMINE HYDROCHLORIDE
  9. CELEXA [Concomitant]
     Active Substance: CITALOPRAM HYDROBROMIDE
  10. QUETIAPINE. [Concomitant]
     Active Substance: QUETIAPINE
  11. REVATIO [Concomitant]
     Active Substance: SILDENAFIL CITRATE
  12. NEUROTIN                           /00949202/ [Concomitant]
     Active Substance: ACETYLCARNITINE HYDROCHLORIDE
  13. CLONAZEPAM. [Concomitant]
     Active Substance: CLONAZEPAM
  14. COZAAR [Concomitant]
     Active Substance: LOSARTAN POTASSIUM
  15. FLEXERIL [Concomitant]
     Active Substance: CYCLOBENZAPRINE HYDROCHLORIDE
  16. ATORVASTATIN [Concomitant]
     Active Substance: ATORVASTATIN
  17. DEMADEX [Concomitant]
     Active Substance: TORSEMIDE
  18. ASPIRIN                            /00002701/ [Concomitant]
     Active Substance: ASPIRIN
  19. LYRICA [Concomitant]
     Active Substance: PREGABALIN
  20. KLOR-CON [Concomitant]
     Active Substance: POTASSIUM CHLORIDE
  21. CYMBALTA [Concomitant]
     Active Substance: DULOXETINE HYDROCHLORIDE
  22. ALDACTONE [Concomitant]
     Active Substance: SPIRONOLACTONE
  23. XYLOCAINE [Concomitant]
     Active Substance: LIDOCAINE HYDROCHLORIDE
  24. PEPCID                             /00305201/ [Concomitant]
     Active Substance: ALUMINUM HYDROXIDE\MAGNESIUM CARBONATE
  25. MILRINONE [Concomitant]
     Active Substance: MILRINONE

REACTIONS (3)
  - Pulmonary arterial hypertension [Fatal]
  - Cardiac failure acute [Fatal]
  - Respiratory failure [Fatal]
